FAERS Safety Report 5842163-7 (Version None)
Quarter: 2008Q3

REPORT INFORMATION
  Report Type: 
  Country: None (occurrence: None)
  Receive Date: 20080731
  Receipt Date: 20080623
  Transmission Date: 20090109
  Serious: No
  Sender: FDA-Public Use
  Company Number: US200806005341

PATIENT
  Sex: Male

DRUGS (3)
  1. BYETTA [Suspect]
     Indication: DIABETES MELLITUS
     Dosage: 10 UG, 2/D, SUBCUTANEOUS
     Route: 058
  2. . [Concomitant]
  3. . [Concomitant]

REACTIONS (2)
  - MALAISE [None]
  - NERVOUSNESS [None]
